FAERS Safety Report 7984629-X (Version None)
Quarter: 2011Q4

REPORT INFORMATION
  Report Type: 
  Country: None (occurrence: None)
  Receive Date: 20111216
  Receipt Date: 20111208
  Transmission Date: 20120403
  Serious: Yes (Hospitalization)
  Sender: FDA-Public Use
  Company Number: BR-B.I. PHARMACEUTICALS,INC./RIDGEFIELD-2011-BR-01377BR

PATIENT
  Age: 88 Year
  Sex: Male
  Weight: 95 kg

DRUGS (2)
  1. AQUINOLONE [Concomitant]
     Indication: CYSTITIS
  2. PRADAXA [Suspect]
     Indication: CEREBROVASCULAR ACCIDENT PROPHYLAXIS
     Dosage: 220 MG
     Route: 048

REACTIONS (2)
  - ATRIAL FIBRILLATION [None]
  - HAEMATOMA [None]
